FAERS Safety Report 5793093-0 (Version None)
Quarter: 2008Q2

REPORT INFORMATION
  Report Type: 
  Country: None (occurrence: None)
  Receive Date: 20080626
  Receipt Date: 20080626
  Transmission Date: 20081010
  Serious: Yes (Hospitalization)
  Sender: FDA-Public Use
  Company Number: None

PATIENT
  Sex: Male
  Weight: 113 kg

DRUGS (12)
  1. BEVACIZUMAB (GENENTECH) [Suspect]
     Indication: GLIOBLASTOMA MULTIFORME
     Dosage: 1125 MG
     Dates: start: 20080529
  2. BEVACIZUMAB (GENENTECH) [Suspect]
     Indication: GLIOBLASTOMA MULTIFORME
     Dosage: 1125 MG
     Dates: start: 20080612
  3. TEMOZOLOMIDE [Suspect]
     Indication: GLIOBLASTOMA MULTIFORME
     Dosage: 470 MG
     Dates: start: 20080529, end: 20080602
  4. LASIX [Concomitant]
  5. DECADRON [Concomitant]
  6. NEXIUM [Concomitant]
  7. MULTI-VITAMIN [Concomitant]
  8. TYLENOL W/ CODEINE NO. 3 [Concomitant]
  9. SPIRONOLACTONE [Concomitant]
  10. FLUCONAZOLE [Concomitant]
  11. LEVAQUIN [Concomitant]
  12. FLOMAX [Concomitant]

REACTIONS (9)
  - ANAL ULCER [None]
  - BALANCE DISORDER [None]
  - DIZZINESS [None]
  - GAIT DISTURBANCE [None]
  - HEADACHE [None]
  - MEMORY IMPAIRMENT [None]
  - PURULENT DISCHARGE [None]
  - RECTAL DISCHARGE [None]
  - TEMPERATURE INTOLERANCE [None]
